FAERS Safety Report 24427850 (Version 2)
Quarter: 2024Q4

REPORT INFORMATION
  Report Type: Spontaneous
  Country: US (occurrence: US)
  Receive Date: 20241011
  Receipt Date: 20241225
  Transmission Date: 20250115
  Serious: No
  Sender: SANOFI AVENTIS
  Company Number: US-SA-2024SA287638

PATIENT
  Age: 6 Year
  Sex: Male
  Weight: 21 kg

DRUGS (2)
  1. DUPIXENT [Suspect]
     Active Substance: DUPILUMAB
     Indication: Dermatitis atopic
     Dosage: 300 MG, Q4W
     Route: 058
  2. DUPIXENT [Suspect]
     Active Substance: DUPILUMAB
     Indication: Dermatitis atopic
     Dosage: 200 MG, Q4W
     Route: 058

REACTIONS (11)
  - Dry skin [Unknown]
  - Sleep disorder [Unknown]
  - Skin weeping [Unknown]
  - Skin fissures [Unknown]
  - Pain in extremity [Unknown]
  - Flushing [Unknown]
  - Skin exfoliation [Unknown]
  - Pruritus [Unknown]
  - Erythema [Unknown]
  - Incorrect dose administered [Unknown]
  - Product prescribing issue [Unknown]
